FAERS Safety Report 18493834 (Version 13)
Quarter: 2021Q2

REPORT INFORMATION
  Report Type: Report from Study
  Country: CO (occurrence: CO)
  Receive Date: 20201111
  Receipt Date: 20210618
  Transmission Date: 20210717
  Serious: Yes (Disabling, Other)
  Sender: FDA-Public Use
  Company Number: CO-TAKEDA-CO202027224

PATIENT
  Age: 6 Year
  Sex: Female
  Weight: 50 kg

DRUGS (3)
  1. TOCILIZUMAB. [Suspect]
     Active Substance: TOCILIZUMAB
     Indication: PRODUCT USED FOR UNKNOWN INDICATION
     Route: 065
  2. VELAGLUCERASE ALFA [Suspect]
     Active Substance: VELAGLUCERASE ALFA
     Dosage: 60 INTERNATIONAL UNIT/KILOGRAM, Q2WEEKS
     Route: 042
     Dates: start: 20200316
  3. VELAGLUCERASE ALFA [Suspect]
     Active Substance: VELAGLUCERASE ALFA
     Indication: GAUCHER^S DISEASE
     Dosage: 60 INTERNATIONAL UNIT/KILOGRAM
     Route: 042
     Dates: start: 20200316

REACTIONS (49)
  - Decreased appetite [Unknown]
  - Alopecia [Not Recovered/Not Resolved]
  - Inflammation [Recovering/Resolving]
  - Condition aggravated [Recovering/Resolving]
  - Limb injury [Recovering/Resolving]
  - Oropharyngeal pain [Recovered/Resolved]
  - Paralysis [Not Recovered/Not Resolved]
  - Sensory loss [Not Recovered/Not Resolved]
  - COVID-19 [Recovered/Resolved]
  - Urticaria [Recovering/Resolving]
  - Skin discolouration [Not Recovered/Not Resolved]
  - Myalgia [Not Recovered/Not Resolved]
  - Balance disorder [Recovering/Resolving]
  - Pustule [Recovering/Resolving]
  - Headache [Recovered/Resolved]
  - Walking disability [Not Recovered/Not Resolved]
  - Wound haemorrhage [Recovering/Resolving]
  - Cellulitis [Not Recovered/Not Resolved]
  - Diarrhoea [Unknown]
  - Poor venous access [Recovered/Resolved]
  - Chronic gastritis [Not Recovered/Not Resolved]
  - Scratch [Recovering/Resolving]
  - Skin laceration [Recovered/Resolved]
  - Erythema [Recovered/Resolved]
  - Fall [Not Recovered/Not Resolved]
  - Pain in extremity [Not Recovered/Not Resolved]
  - Osteonecrosis [Recovered/Resolved]
  - Bone neoplasm [Not Recovered/Not Resolved]
  - Wound drainage [Recovering/Resolving]
  - Pain [Recovered/Resolved]
  - Immune system disorder [Unknown]
  - Fatigue [Not Recovered/Not Resolved]
  - Product use issue [Unknown]
  - Ligament sprain [Recovering/Resolving]
  - Metabolic alkalosis [Recovered/Resolved]
  - Dizziness [Recovering/Resolving]
  - Cough [Recovered/Resolved]
  - Weight increased [Unknown]
  - Crying [Not Recovered/Not Resolved]
  - Hypoaesthesia [Not Recovered/Not Resolved]
  - Abdominal pain [Recovered/Resolved]
  - Arthralgia [Recovered/Resolved]
  - Wrong patient received product [Unknown]
  - Muscle atrophy [Recovering/Resolving]
  - Body height increased [Unknown]
  - Faeces discoloured [Not Recovered/Not Resolved]
  - Limb discomfort [Recovering/Resolving]
  - Precocious puberty [Unknown]
  - Abdominal pain upper [Not Recovered/Not Resolved]

NARRATIVE: CASE EVENT DATE: 20200316
